FAERS Safety Report 10556699 (Version 1)
Quarter: 2014Q4

REPORT INFORMATION
  Report Type: Spontaneous
  Country: KR (occurrence: KR)
  Receive Date: 20141031
  Receipt Date: 20141031
  Transmission Date: 20150529
  Serious: Yes (Life-Threatening, Hospitalization)
  Sender: FDA-Public Use
  Company Number: KR-JNJFOC-20141011582

PATIENT
  Age: 67 Year
  Sex: Male

DRUGS (1)
  1. FENTANYL. [Suspect]
     Active Substance: FENTANYL
     Indication: NECK PAIN
     Route: 062

REACTIONS (3)
  - Coma [Not Recovered/Not Resolved]
  - Basal ganglia infarction [Not Recovered/Not Resolved]
  - Toxicity to various agents [Not Recovered/Not Resolved]
